FAERS Safety Report 24858471 (Version 1)
Quarter: 2025Q1

REPORT INFORMATION
  Report Type: Report from Study
  Country: US (occurrence: US)
  Receive Date: 20250117
  Receipt Date: 20250117
  Transmission Date: 20250408
  Serious: No
  Sender: ACCORD
  Company Number: US-Accord-453331

PATIENT
  Sex: Female

DRUGS (1)
  1. CLOZAPINE [Suspect]
     Active Substance: CLOZAPINE
     Indication: Bipolar II disorder

REACTIONS (8)
  - Salivary hypersecretion [Unknown]
  - Discomfort [Unknown]
  - Urinary incontinence [Unknown]
  - Drooling [Unknown]
  - Dysphagia [Unknown]
  - Sluggishness [Unknown]
  - Dysarthria [Unknown]
  - Balance disorder [Unknown]
